FAERS Safety Report 9099768 (Version 2)
Quarter: 2013Q2

REPORT INFORMATION
  Report Type: Spontaneous
  Country: US (occurrence: US)
  Receive Date: 20130214
  Receipt Date: 20130516
  Transmission Date: 20140414
  Serious: Yes (Hospitalization)
  Sender: FDA-Public Use
  Company Number: US-BAYER-2013-017729

PATIENT
  Age: 29 Year
  Sex: Female
  Weight: 92.97 kg

DRUGS (17)
  1. YASMIN [Suspect]
     Indication: MENORRHAGIA
     Dosage: UNK
     Dates: start: 2010, end: 2011
  2. YASMIN [Suspect]
     Indication: MENSTRUAL CYCLE MANAGEMENT
  3. OCELLA [Suspect]
     Indication: MENORRHAGIA
     Dosage: UNK
     Dates: start: 2010, end: 2011
  4. OCELLA [Suspect]
     Indication: MENSTRUAL CYCLE MANAGEMENT
  5. YAZ [Suspect]
     Dosage: UNK
     Dates: start: 2010, end: 2011
  6. PARAGARD [Concomitant]
     Indication: CONTRACEPTION
     Dosage: UNK
     Dates: start: 20100617, end: 20111222
  7. BUPROPION [Concomitant]
     Dosage: 150 MG, UNK
  8. RISPERIDONE [Concomitant]
     Dosage: 0.5 MG, UNK
  9. RISPERIDONE [Concomitant]
     Dosage: 1 MG, TID
  10. SEROQUEL [Concomitant]
     Dosage: 25 MG, UNK
  11. CITALOPRAM [Concomitant]
     Dosage: 40 MG, UNK
  12. UNISCOM [Concomitant]
  13. MINIPRESS [Concomitant]
     Dosage: 1 MG, DAILY
  14. TRAZODONE [Concomitant]
     Dosage: 50 MG, TID
  15. TRILEPTAL [Concomitant]
     Dosage: 300 MG, QID
  16. HERBALS NOS W/MINERALS NOS/VITAMINS NOS [Concomitant]
  17. DILAUDID [Concomitant]

REACTIONS (8)
  - Pulmonary embolism [Recovered/Resolved]
  - Injury [Recovered/Resolved]
  - Pain [Recovered/Resolved]
  - Emotional distress [None]
  - General physical health deterioration [Recovered/Resolved]
  - Anxiety [None]
  - Abdominal pain [None]
  - Pain [None]
